FAERS Safety Report 24652358 (Version 1)
Quarter: 2024Q4

REPORT INFORMATION
  Report Type: Spontaneous
  Country: US (occurrence: None)
  Receive Date: 20241121
  Receipt Date: 20241121
  Transmission Date: 20250115
  Serious: No
  Sender: Public
  Company Number: None

PATIENT
  Age: 41 Year
  Sex: Female

DRUGS (1)
  1. SKYRIZI [Suspect]
     Active Substance: RISANKIZUMAB-RZAA
     Indication: Psoriasis
     Dosage: FREQUENCY : AS DIRECTED;?INJECT 150MG SUBCUTANEOUSLY AT WEEK O AND WEEK 4 AS DIRECTED.?
     Route: 058
     Dates: start: 202306

REACTIONS (1)
  - Pneumonia [None]
